FAERS Safety Report 5614887-8 (Version None)
Quarter: 2008Q1

REPORT INFORMATION
  Report Type: 
  Country: None (occurrence: None)
  Receive Date: 20080131
  Receipt Date: 20080118
  Transmission Date: 20080703
  Serious: Yes (Death, Life-Threatening, Other)
  Sender: FDA-Public Use
  Company Number: 200719777GDDC

PATIENT
  Age: 71 Year
  Sex: Male
  Weight: 55 kg

DRUGS (3)
  1. MITOXANTRONE [Suspect]
     Indication: PROSTATE CANCER
     Dosage: 20 MG Q3W IV
     Route: 042
     Dates: start: 20070910, end: 20070910
  2. PREDNISONE TAB [Suspect]
     Indication: PROSTATE CANCER
     Dosage: 10 MG BID PO
     Route: 048
     Dates: start: 20070731, end: 20070910
  3. NEUPOGEN [Concomitant]

REACTIONS (20)
  - ANAEMIA [None]
  - BRONCHITIS [None]
  - CONDITION AGGRAVATED [None]
  - ESCHERICHIA INFECTION [None]
  - FEELING ABNORMAL [None]
  - INTERSTITIAL LUNG DISEASE [None]
  - LUNG CONSOLIDATION [None]
  - LUNG INFECTION [None]
  - LYMPHADENOPATHY [None]
  - MALNUTRITION [None]
  - METABOLIC ALKALOSIS [None]
  - METASTASES TO LIVER [None]
  - METASTASES TO LUNG [None]
  - METASTASIS [None]
  - NEUTROPENIC INFECTION [None]
  - PLEURAL FIBROSIS [None]
  - PNEUMONIA [None]
  - RESPIRATORY FAILURE [None]
  - SEPTIC SHOCK [None]
  - STAPHYLOCOCCAL INFECTION [None]
